FAERS Safety Report 10516644 (Version 14)
Quarter: 2015Q1

REPORT INFORMATION
  Report Type: Report from Study
  Country: JP (occurrence: JP)
  Receive Date: 20141014
  Receipt Date: 20150326
  Transmission Date: 20150720
  Serious: Yes (Hospitalization)
  Sender: FDA-Public Use
  Company Number: JP-009507513-1410JPN005588

PATIENT
  Age: 69 Year
  Sex: Male
  Weight: 65.3 kg

DRUGS (15)
  1. LOXOPROFEN [Concomitant]
     Active Substance: LOXOPROFEN
     Indication: CANCER PAIN
     Dosage: TOTAL DAILY DOSE: 60 MG, PRN
     Route: 048
     Dates: start: 20140530, end: 20140907
  2. SODIUM PICOSULFATE [Concomitant]
     Active Substance: SODIUM PICOSULFATE
     Indication: CONSTIPATION
     Dosage: TOTAL DAILY DOSE: 1 DROP, PRN
     Route: 048
     Dates: start: 20140623
  3. TRAMAL [Concomitant]
     Active Substance: TRAMADOL
     Indication: CANCER PAIN
     Dosage: TOTAL DAILY DOSE: 25 MG, PRN
     Route: 048
     Dates: start: 20140908, end: 20140915
  4. LOXOPROFEN [Concomitant]
     Active Substance: LOXOPROFEN
     Indication: CANCER PAIN
     Dosage: TOTAL DAILY DOSE: 60 MG, PRN
     Route: 048
     Dates: start: 20140908
  5. BIO-THREE [Concomitant]
     Active Substance: HERBALS
     Indication: CONSTIPATION
     Dosage: 2 TABLETS, QD
     Route: 048
     Dates: start: 201306
  6. PRIMPERAN [Concomitant]
     Active Substance: METOCLOPRAMIDE HYDROCHLORIDE
     Indication: NAUSEA
     Dosage: 5 MG, TID
     Route: 048
     Dates: start: 20140908, end: 20141018
  7. MS TWICELON [Concomitant]
     Indication: CANCER PAIN
     Dosage: 10 MG, BID
     Route: 048
     Dates: start: 20140916
  8. PEMBROLIZUMAB. [Suspect]
     Active Substance: PEMBROLIZUMAB
     Dosage: 10 MG/KG, Q2W
     Route: 042
     Dates: start: 20140826, end: 20140826
  9. OPSO [Concomitant]
     Active Substance: MORPHINE HYDROCHLORIDE
     Indication: CANCER PAIN
     Dosage: TOTAL DAILY DOSE: 5 MG, PRN
     Route: 048
     Dates: start: 20140611, end: 20140907
  10. FAMOTIDINE. [Concomitant]
     Active Substance: FAMOTIDINE
     Indication: GASTRITIS PROPHYLAXIS
     Dosage: 20 MG, BID
     Route: 048
     Dates: start: 20140715
  11. PEMBROLIZUMAB. [Suspect]
     Active Substance: PEMBROLIZUMAB
     Indication: NEOPLASM MALIGNANT
     Dosage: 10 MG/KG, Q2W
     Route: 042
     Dates: start: 20140617, end: 20140812
  12. OPSO [Concomitant]
     Active Substance: MORPHINE HYDROCHLORIDE
     Indication: CANCER PAIN
     Dosage: TOTAL DAILY DOSE: 5 MG, PRN
     Route: 048
     Dates: start: 20140908
  13. MAGLAX (MAGNESIUM OXIDE) [Concomitant]
     Active Substance: MAGNESIUM OXIDE
     Indication: CONSTIPATION
     Dosage: TOTAL DAILY DOSE: 330 MG, PRN
     Route: 048
     Dates: start: 20140610
  14. DEPAS [Concomitant]
     Active Substance: ETIZOLAM
     Indication: INSOMNIA
     Dosage: 1 TABLET, QD
     Route: 048
     Dates: start: 201306
  15. AMLODINE [Concomitant]
     Active Substance: AMLODIPINE BESYLATE
     Indication: HYPERTENSION
     Dosage: 5 MG, QD
     Route: 048
     Dates: start: 200206

REACTIONS (1)
  - Pemphigoid [Recovered/Resolved]

NARRATIVE: CASE EVENT DATE: 20140918
